FAERS Safety Report 11114434 (Version 2)
Quarter: 2021Q2

REPORT INFORMATION
  Report Type: Spontaneous
  Country: US (occurrence: US)
  Receive Date: 20150515
  Receipt Date: 20210416
  Transmission Date: 20210716
  Serious: Yes (Hospitalization, Other)
  Sender: FDA-Public Use
  Company Number: US-AUROBINDO-AUR-APL-2015-04210

PATIENT
  Age: 2 Year
  Sex: Female

DRUGS (2)
  1. DONEPEZIL. [Suspect]
     Active Substance: DONEPEZIL
     Indication: PRODUCT USED FOR UNKNOWN INDICATION
     Dosage: UNK
     Route: 048
  2. MEMANTINE. [Suspect]
     Active Substance: MEMANTINE
     Indication: PRODUCT USED FOR UNKNOWN INDICATION
     Dosage: UNK
     Route: 048

REACTIONS (12)
  - Agitation [Recovering/Resolving]
  - Hallucination, visual [Recovering/Resolving]
  - Pyrexia [Recovering/Resolving]
  - Lethargy [Recovering/Resolving]
  - Blood pressure decreased [Recovering/Resolving]
  - Eye movement disorder [Recovering/Resolving]
  - Unintentional use for unapproved indication [Unknown]
  - Heart rate increased [Recovering/Resolving]
  - Tachypnoea [Recovering/Resolving]
  - Encephalopathy [Recovering/Resolving]
  - Seizure [Recovering/Resolving]
  - Accidental overdose [Recovering/Resolving]
